FAERS Safety Report 5038905-3 (Version None)
Quarter: 2006Q2

REPORT INFORMATION
  Report Type: 
  Country: None (occurrence: None)
  Receive Date: 20060601
  Receipt Date: 20060109
  Transmission Date: 20061013
  Serious: No
  Sender: FDA-Public Use
  Company Number: 2005PV006399

PATIENT
  Age: 52 Year
  Sex: Female
  Weight: 90.7194 kg

DRUGS (9)
  1. BYETTA [Suspect]
     Indication: DIABETES MELLITUS NON-INSULIN-DEPENDENT
     Dosage: 5 MCG;BID;SC
     Route: 058
     Dates: start: 20051209, end: 20051228
  2. BYETTA [Suspect]
     Indication: DIABETES MELLITUS NON-INSULIN-DEPENDENT
     Dosage: 5 MCG;BID;SC
     Route: 058
     Dates: start: 20060103, end: 20060109
  3. GLYBURIDE [Concomitant]
  4. AVANDIA [Concomitant]
  5. LIPITOR [Concomitant]
  6. NORVASC [Concomitant]
  7. DIOVAN [Concomitant]
  8. BUSPAR [Concomitant]
  9. ASPIRIN [Concomitant]

REACTIONS (15)
  - ANOSMIA [None]
  - BLOOD GLUCOSE DECREASED [None]
  - COUGH [None]
  - DECREASED APPETITE [None]
  - DISORIENTATION [None]
  - HYPOGEUSIA [None]
  - INJECTION SITE ERYTHEMA [None]
  - INJECTION SITE HAEMORRHAGE [None]
  - NASOPHARYNGITIS [None]
  - NAUSEA [None]
  - PHARYNGOLARYNGEAL PAIN [None]
  - PYREXIA [None]
  - RHINORRHOEA [None]
  - SOMNOLENCE [None]
  - VOMITING [None]
